FAERS Safety Report 5721453-2 (Version None)
Quarter: 2008Q2

REPORT INFORMATION
  Report Type: 
  Country: None (occurrence: None)
  Receive Date: 20080429
  Receipt Date: 20080418
  Transmission Date: 20081010
  Serious: Yes (Hospitalization)
  Sender: FDA-Public Use
  Company Number: GB-ASTRAZENECA-2008SE02134

PATIENT
  Age: 64 Year
  Sex: Female
  Weight: 66 kg

DRUGS (15)
  1. AMIAS 4MG TABLETS [Suspect]
     Indication: CARDIAC FAILURE
     Route: 048
     Dates: start: 20080402, end: 20080405
  2. AMITRIPTYLINE HYDROCHLORIDE [Concomitant]
  3. CARBIMAZOLE [Concomitant]
  4. CHLORPHENAMINE [Concomitant]
  5. DIGOXIN [Concomitant]
  6. DOCUSATE SODIUM [Concomitant]
  7. FUROSEMIDE [Concomitant]
  8. KAPAKE INSTS [Concomitant]
  9. LACTULOSE [Concomitant]
  10. METFORMIN HCL [Concomitant]
  11. NICORANDIL [Concomitant]
  12. NITRAZEPAM [Concomitant]
     Route: 065
  13. NITROLINGUAL [Concomitant]
  14. ALBUTEROL [Concomitant]
     Route: 055
  15. WARFARIN SODIUM [Concomitant]

REACTIONS (1)
  - SWOLLEN TONGUE [None]
